FAERS Safety Report 5406193-1 (Version None)
Quarter: 2007Q3

REPORT INFORMATION
  Report Type: 
  Country: None (occurrence: None)
  Receive Date: 20070806
  Receipt Date: 20070724
  Transmission Date: 20080115
  Serious: Yes (Hospitalization)
  Sender: FDA-Public Use
  Company Number: AT-ASTRAZENECA-2007PK00195

PATIENT
  Age: 35 Year
  Sex: Male

DRUGS (11)
  1. METOPROLOL TARTRATE [Interacting]
     Indication: TACHYCARDIA
     Route: 048
     Dates: start: 20061118, end: 20061119
  2. METOPROLOL TARTRATE [Interacting]
     Route: 048
     Dates: start: 20061120, end: 20061121
  3. METOPROLOL TARTRATE [Interacting]
     Route: 048
     Dates: start: 20061122
  4. LEPONEX [Suspect]
     Dates: end: 20061113
  5. LEPONEX [Suspect]
     Dates: start: 20061114, end: 20061126
  6. LEPONEX [Suspect]
     Dates: start: 20061127
  7. OXAZEPAM [Suspect]
     Route: 048
     Dates: start: 20061114, end: 20061119
  8. OXAZEPAM [Suspect]
     Route: 048
     Dates: start: 20061120, end: 20061120
  9. OXAZEPAM [Suspect]
     Route: 048
     Dates: start: 20061121, end: 20061122
  10. OXAZEPAM [Suspect]
     Route: 048
     Dates: start: 20061123
  11. ABILIFY [Interacting]
     Route: 048
     Dates: start: 20061031

REACTIONS (2)
  - HYPOTENSION [None]
  - SEDATION [None]
